FAERS Safety Report 21167731 (Version 5)
Quarter: 2022Q4

REPORT INFORMATION
  Report Type: Spontaneous
  Country: US (occurrence: US)
  Receive Date: 20220803
  Receipt Date: 20221220
  Transmission Date: 20230112
  Serious: No
  Sender: FDA-Public Use
  Company Number: US-JNJFOC-20220762009

PATIENT
  Age: 36 Year
  Sex: Male

DRUGS (1)
  1. CONCERTA [Suspect]
     Active Substance: METHYLPHENIDATE HYDROCHLORIDE
     Indication: Product used for unknown indication
     Dosage: 1 TABLET AROUND 8:30 IN THE MORNING AND 1 TABLET AROUND 12:30PM-1PM. THE EFFECTS WOULD WEAR OFF AROU
     Route: 065

REACTIONS (1)
  - Therapeutic response decreased [Unknown]
